FAERS Safety Report 4487235-7 (Version None)
Quarter: 2004Q4

REPORT INFORMATION
  Report Type: 
  Country: None (occurrence: None)
  Receive Date: 20041022
  Receipt Date: 20041014
  Transmission Date: 20050328
  Serious: Yes (Death)
  Sender: FDA-Public Use
  Company Number: 200409114

PATIENT
  Age: 51 Year

DRUGS (4)
  1. STREPTASE [Suspect]
     Indication: ACUTE MYOCARDIAL INFARCTION
     Dosage: 1.5 MIU DAILY
     Dates: start: 20040530, end: 20040530
  2. ASPIRIN [Suspect]
     Indication: ACUTE MYOCARDIAL INFARCTION
     Dosage: 500 MG DAILY PO
     Route: 048
     Dates: start: 20040530, end: 20040530
  3. ENOXAPARIN SODIUM [Suspect]
     Indication: ACUTE MYOCARDIAL INFARCTION
     Dosage: IV
     Route: 042
     Dates: start: 20040530, end: 20040530
  4. FAMOTIDINE [Concomitant]

REACTIONS (2)
  - CARDIO-RESPIRATORY ARREST [None]
  - ELECTROMECHANICAL DISSOCIATION [None]
